FAERS Safety Report 16441323 (Version 1)
Quarter: 2019Q2

REPORT INFORMATION
  Report Type: Spontaneous
  Country: US (occurrence: US)
  Receive Date: 20190617
  Receipt Date: 20190617
  Transmission Date: 20190711
  Serious: Yes (Hospitalization)
  Sender: FDA-Public Use
  Company Number: US-VERTEX PHARMACEUTICALS-2019-005505

PATIENT
  Sex: Female

DRUGS (19)
  1. PANTOPRAZOLE [Concomitant]
     Active Substance: PANTOPRAZOLE
  2. TRAZODONE [Concomitant]
     Active Substance: TRAZODONE HYDROCHLORIDE
  3. POLYETHYLENE GLYCOL [Concomitant]
     Active Substance: POLYETHYLENE GLYCOLS
  4. ALBUTEROL                          /00139501/ [Concomitant]
     Active Substance: ALBUTEROL
  5. PULMOZYME [Concomitant]
     Active Substance: DORNASE ALFA
  6. VENTOLIN HFA [Concomitant]
     Active Substance: ALBUTEROL SULFATE
  7. IPRATROPIUM BROMIDE. [Concomitant]
     Active Substance: IPRATROPIUM BROMIDE
  8. OLOPATADINE. [Concomitant]
     Active Substance: OLOPATADINE
  9. ESZOPICLONE. [Concomitant]
     Active Substance: ESZOPICLONE
  10. HYDROCODONE BITARTRATE AND ACETAMINOPHEN [Concomitant]
     Active Substance: ACETAMINOPHEN\HYDROCODONE BITARTRATE
  11. BUDESONIDE. [Concomitant]
     Active Substance: BUDESONIDE
  12. IBUPROFEN. [Concomitant]
     Active Substance: IBUPROFEN
  13. FLUTICASONE. [Concomitant]
     Active Substance: FLUTICASONE
  14. LEVEMIR [Concomitant]
     Active Substance: INSULIN DETEMIR
  15. SYMDEKO [Suspect]
     Active Substance: IVACAFTOR\TEZACAFTOR
     Indication: CYSTIC FIBROSIS
     Dosage: 100 MG TEZACAFTOR/150 MG IVACAFTOR AM; 150 MG IVACAFTOR PM
     Route: 048
     Dates: start: 20190507
  16. AZITHROMYCIN ANHYDROUS. [Concomitant]
     Active Substance: AZITHROMYCIN ANHYDROUS
  17. MONTELUKAST [Concomitant]
     Active Substance: MONTELUKAST SODIUM
  18. PRAMIPEXOLE. [Concomitant]
     Active Substance: PRAMIPEXOLE
  19. TOBI [Concomitant]
     Active Substance: TOBRAMYCIN
     Route: 055

REACTIONS (1)
  - Cystic fibrosis [Unknown]

NARRATIVE: CASE EVENT DATE: 2019
